FAERS Safety Report 9498807 (Version 2)
Quarter: 2013Q3

REPORT INFORMATION
  Report Type: Spontaneous
  Country: DK (occurrence: DK)
  Receive Date: 20130904
  Receipt Date: 20130904
  Transmission Date: 20140515
  Serious: Yes (Other)
  Sender: FDA-Public Use
  Company Number: DK-ASTRAZENECA-2013SE64624

PATIENT
  Sex: Female

DRUGS (3)
  1. SEROQUEL PROLONG [Suspect]
     Indication: PSYCHOTIC DISORDER
     Route: 048
     Dates: start: 20130117, end: 20130209
  2. SEROQUEL PROLONG [Suspect]
     Indication: PSYCHOTIC DISORDER
     Route: 048
     Dates: start: 20130209, end: 20130309
  3. ZOLOFT [Suspect]
     Indication: ANTIDEPRESSANT THERAPY
     Dates: start: 20120927, end: 20130225

REACTIONS (2)
  - Exposure during pregnancy [Unknown]
  - Pre-eclampsia [Unknown]
